FAERS Safety Report 4620121-8 (Version None)
Quarter: 2005Q1

REPORT INFORMATION
  Report Type: 
  Country: None (occurrence: None)
  Receive Date: 20050328
  Receipt Date: 20050224
  Transmission Date: 20050727
  Serious: Yes (Hospitalization)
  Sender: FDA-Public Use
  Company Number: DE-AMGEN-UK116490

PATIENT
  Age: 56 Year
  Sex: Male

DRUGS (1)
  1. MIMPARA [Suspect]
     Indication: HYPERPARATHYROIDISM SECONDARY
     Route: 048
     Dates: start: 20050101

REACTIONS (4)
  - DIARRHOEA [None]
  - INFECTION [None]
  - LEUKOCYTOSIS [None]
  - QUADRIPARESIS [None]
